FAERS Safety Report 4565148-X (Version None)
Quarter: 2005Q1

REPORT INFORMATION
  Report Type: 
  Country: None (occurrence: None)
  Receive Date: 20050127
  Receipt Date: 20050127
  Transmission Date: 20050727
  Serious: No
  Sender: FDA-Public Use
  Company Number: None

PATIENT
  Age: 73 Year
  Sex: Male
  Weight: 75.2971 kg

DRUGS (1)
  1. THIOTHIXENE [Suspect]

REACTIONS (3)
  - AKATHISIA [None]
  - INSOMNIA [None]
  - TARDIVE DYSKINESIA [None]
